FAERS Safety Report 6267298-9 (Version None)
Quarter: 2009Q3

REPORT INFORMATION
  Report Type: 
  Country: None (occurrence: None)
  Receive Date: 20090714
  Receipt Date: 20090703
  Transmission Date: 20100115
  Serious: Yes (Hospitalization)
  Sender: FDA-Public Use
  Company Number: ES-PFIZER INC-2009225111

PATIENT
  Age: 65 Year

DRUGS (6)
  1. ALDACTONE [Suspect]
     Indication: HYPERTENSION
     Dosage: 25 MG, UNK
     Route: 048
     Dates: start: 20080817, end: 20080825
  2. NORVASC [Interacting]
     Indication: HYPERTENSION
     Dosage: 5 MG, UNK
     Route: 048
     Dates: end: 20080825
  3. OMEPRAZOL [Interacting]
     Dosage: UNK
     Route: 048
     Dates: end: 20080825
  4. CLOPIDOGREL [Interacting]
     Indication: MYOCARDIAL ISCHAEMIA
     Dosage: UNK
     Route: 048
     Dates: end: 20080825
  5. CEFTRIAXONE [Interacting]
     Indication: ENDOCARDITIS BACTERIAL
     Dosage: UNK
     Route: 042
     Dates: start: 20080817, end: 20080827
  6. SIMVASTATIN [Concomitant]
     Route: 048

REACTIONS (2)
  - AGRANULOCYTOSIS [None]
  - DRUG INTERACTION [None]
